FAERS Safety Report 14834523 (Version 2)
Quarter: 2018Q2

REPORT INFORMATION
  Report Type: Report from Study
  Country: None (occurrence: EG)
  Receive Date: 20180501
  Receipt Date: 20180503
  Transmission Date: 20180711
  Serious: Yes (Death)
  Sender: FDA-Public Use
  Company Number: EG-ABBVIE-18P-048-2337206-00

PATIENT
  Age: 78 Year
  Sex: Male
  Weight: 80 kg

DRUGS (1)
  1. VENETOCLAX. [Suspect]
     Active Substance: VENETOCLAX
     Indication: ACUTE MYELOID LEUKAEMIA
     Route: 048
     Dates: start: 20180414, end: 20180419

REACTIONS (4)
  - Altered state of consciousness [Fatal]
  - Hypoxia [Fatal]
  - Off label use [Unknown]
  - Dyspnoea [Fatal]

NARRATIVE: CASE EVENT DATE: 20180414
